FAERS Safety Report 4782487-8 (Version None)
Quarter: 2005Q3

REPORT INFORMATION
  Report Type: 
  Country: None (occurrence: None)
  Receive Date: 20050929
  Receipt Date: 20041223
  Transmission Date: 20060218
  Serious: No
  Sender: FDA-Public Use
  Company Number: 393083

PATIENT
  Age: 77 Year
  Sex: Male

DRUGS (5)
  1. COREG [Suspect]
     Indication: HYPERTENSION
     Dosage: 3.125MG TWICE PER DAY
     Route: 048
     Dates: start: 20041217
  2. ASPIRIN [Concomitant]
  3. AVODART [Concomitant]
  4. MULTI-VITAMIN [Concomitant]
  5. RHINOCORT [Concomitant]

REACTIONS (4)
  - CHEST PAIN [None]
  - DIZZINESS [None]
  - FLUSHING [None]
  - HEART RATE IRREGULAR [None]
